FAERS Safety Report 8984167 (Version 1)
Quarter: 2012Q4

REPORT INFORMATION
  Report Type: 
  Country: FR (occurrence: FR)
  Receive Date: 20121226
  Receipt Date: 20121226
  Transmission Date: 20130627
  Serious: Yes (Hospitalization)
  Sender: FDA-Public Use
  Company Number: PHHY2012FR117951

PATIENT
  Age: 81 Year
  Sex: Female

DRUGS (6)
  1. TAREG [Suspect]
     Dosage: 1 DF, QD
     Route: 048
     Dates: start: 201208, end: 20121002
  2. AMLOR [Suspect]
     Dosage: 1 DF, QD
     Route: 048
     Dates: start: 201208, end: 20121002
  3. ALDACTONE [Concomitant]
     Dosage: 1 DF, UNK
     Route: 048
  4. EUPRESSYL [Concomitant]
     Route: 048
  5. PREVISCAN [Concomitant]
     Dosage: 1 DF, UNK
     Dates: start: 2009
  6. LEVOTHYROX [Concomitant]
     Dosage: 1 DF, QD
     Route: 048
     Dates: start: 2009

REACTIONS (7)
  - Drug reaction with eosinophilia and systemic symptoms [Unknown]
  - Dermatitis exfoliative [Recovered/Resolved]
  - Toxic skin eruption [Unknown]
  - Pruritus [Recovered/Resolved]
  - Eosinophil count increased [Recovered/Resolved]
  - Renal failure [Recovered/Resolved]
  - Dehydration [Unknown]
